FAERS Safety Report 8537428-4 (Version None)
Quarter: 2012Q3

REPORT INFORMATION
  Report Type: 
  Country: None (occurrence: None)
  Receive Date: 20120725
  Receipt Date: 20120720
  Transmission Date: 20120928
  Serious: Yes (Other)
  Sender: FDA-Public Use
  Company Number: US-PFIZER INC-2012062333

PATIENT
  Sex: Female

DRUGS (3)
  1. PREDNISONE [Suspect]
     Dosage: UNK
  2. CHANTIX [Suspect]
     Indication: SMOKING CESSATION THERAPY
     Dosage: UNK
  3. NARDIL [Suspect]
     Dosage: UNK

REACTIONS (2)
  - CATARACT [None]
  - TRANSPLANT [None]
